FAERS Safety Report 18641450 (Version 1)
Quarter: 2020Q4

REPORT INFORMATION
  Report Type: Spontaneous
  Country: DE (occurrence: DE)
  Receive Date: 20201221
  Receipt Date: 20201221
  Transmission Date: 20210114
  Serious: Yes (Hospitalization)
  Sender: FDA-Public Use
  Company Number: DE-ACCORD-211498

PATIENT
  Age: 78 Year
  Sex: Male

DRUGS (12)
  1. DOXEPIN [Concomitant]
     Active Substance: DOXEPIN
     Dosage: 100 MG, 0.5-0-1-0
     Route: 048
  2. PREGABADOR [Concomitant]
     Active Substance: PREGABALIN
     Dosage: 150 MG, 1-1-1-0
     Route: 048
  3. DUAKLIR GENUAIR [Concomitant]
     Active Substance: ACLIDINIUM BROMIDE\FORMOTEROL FUMARATE
     Dosage: 340/12 UG, 1-0-1-0, METERED DOSE AEROSO, STRENGTH: 340 MICROGRAMS / 12 MICROGRAMS
     Route: 055
  4. FORMOTOP [Concomitant]
     Active Substance: FORMOTEROL FUMARATE
     Dosage: 12 UG, 1-0-1-0, METERED DOSE AEROSOL, NOVOLIZER, STRENGTH: 12 MICROGRAMS
     Route: 055
  5. OMEPRAZOLE. [Concomitant]
     Active Substance: OMEPRAZOLE
     Dosage: 20 MG, 1-0-0-0
     Route: 048
  6. FUROSEMIDE. [Suspect]
     Active Substance: FUROSEMIDE
     Indication: PRODUCT USED FOR UNKNOWN INDICATION
     Dosage: 40 MG, 1-1-0-0
     Route: 048
  7. ACETYLSALICYLIC ACID [Concomitant]
     Active Substance: ASPIRIN
     Dosage: 100 MG, 1-0-0-0
     Route: 048
  8. TAMSULOSIN/TAMSULOSIN HYDROCHLORIDE [Concomitant]
     Active Substance: TAMSULOSIN HYDROCHLORIDE
     Dosage: 0.4 MG, 0-0-1-0
     Route: 048
  9. BUDELIN NOVOLIZER [Concomitant]
     Dosage: 0.4 MG, 2-0-2-0,METERED DOSE AEROSO, STRENGTH: 0.4 MG
     Route: 055
  10. ALLOPURINOL. [Concomitant]
     Active Substance: ALLOPURINOL
     Dosage: 100 MG, 1-0-0-0
     Route: 048
  11. METAMIZOLE SODIUM [Concomitant]
     Active Substance: METAMIZOLE SODIUM
     Dosage: 40 GTT, 3X, DROPS
     Route: 048
  12. BISOPROLOL [Concomitant]
     Active Substance: BISOPROLOL
     Dosage: 5 MG, 1-0-0-0
     Route: 048

REACTIONS (3)
  - General physical health deterioration [Recovering/Resolving]
  - Tremor [Recovering/Resolving]
  - Dehydration [Recovering/Resolving]
